FAERS Safety Report 17533508 (Version 1)
Quarter: 2020Q1

REPORT INFORMATION
  Report Type: Spontaneous
  Country: US (occurrence: US)
  Receive Date: 20200304
  Receipt Date: 20200304
  Transmission Date: 20200409
  Serious: Yes (Death)
  Sender: FDA-Public Use
  Company Number: None

PATIENT
  Age: 66 Year
  Sex: Female
  Weight: 123.38 kg

DRUGS (1)
  1. ZOLEDRONIC ACID 5 MG/100 ML, 5 MG/100ML [Suspect]
     Active Substance: ZOLEDRONIC ACID
     Indication: OSTEOPOROSIS
     Dosage: INFUSE 5 MG INTRAVENOULSY OVER NO LESS THAN 15 MINS EVERY YEAR AS DIRECTED
     Route: 042
     Dates: start: 201901

REACTIONS (1)
  - Death [None]
